FAERS Safety Report 5530512-9 (Version None)
Quarter: 2007Q4

REPORT INFORMATION
  Report Type: 
  Country: None (occurrence: None)
  Receive Date: 20071119
  Receipt Date: 20071009
  Transmission Date: 20080405
  Serious: No
  Sender: FDA-Public Use
  Company Number: TPA2007A02073

PATIENT
  Age: 56 Year
  Sex: Female
  Weight: 63.5036 kg

DRUGS (9)
  1. ROZEREM [Suspect]
     Indication: INITIAL INSOMNIA
     Dosage: 8 MG, QHS, PER ORAL 8 MG, HS, PER ORAL
     Route: 048
     Dates: start: 20070901, end: 20070901
  2. ROZEREM [Suspect]
     Indication: MIDDLE INSOMNIA
     Dosage: 8 MG, QHS, PER ORAL 8 MG, HS, PER ORAL
     Route: 048
     Dates: start: 20070901, end: 20070901
  3. ROZEREM [Suspect]
     Indication: INITIAL INSOMNIA
     Dosage: 8 MG, QHS, PER ORAL 8 MG, HS, PER ORAL
     Route: 048
     Dates: start: 20060101
  4. ROZEREM [Suspect]
     Indication: MIDDLE INSOMNIA
     Dosage: 8 MG, QHS, PER ORAL 8 MG, HS, PER ORAL
     Route: 048
     Dates: start: 20060101
  5. LIPITOR [Concomitant]
  6. ZETIA [Concomitant]
  7. LEVOTHROID [Concomitant]
  8. ADVAIR DISKUS 100/50 [Concomitant]
  9. DITROPAN [Concomitant]

REACTIONS (2)
  - DRUG INEFFECTIVE [None]
  - SOMNOLENCE [None]
